FAERS Safety Report 13998754 (Version 1)
Quarter: 2017Q3

REPORT INFORMATION
  Report Type: Not Available
  Country: US (occurrence: US)
  Receive Date: 20170921
  Receipt Date: 20170921
  Transmission Date: 20171128
  Serious: No
  Sender: FDA-Public Use
  Company Number: US-NEUROCRINE BIOSCIENCES INC.-2017NBI00677

PATIENT
  Age: 73 Year
  Sex: Male

DRUGS (5)
  1. INGREZZA [Suspect]
     Active Substance: VALBENAZINE
     Indication: PRODUCT USED FOR UNKNOWN INDICATION
     Route: 048
     Dates: start: 20170726
  2. IBUPROFEN. [Concomitant]
     Active Substance: IBUPROFEN
  3. TAMSULOSIN [Concomitant]
     Active Substance: TAMSULOSIN
  4. FINASTERIDE. [Concomitant]
     Active Substance: FINASTERIDE
  5. CLOZAPINE. [Concomitant]
     Active Substance: CLOZAPINE

REACTIONS (1)
  - Constipation [Not Recovered/Not Resolved]

NARRATIVE: CASE EVENT DATE: 20170726
